FAERS Safety Report 5130579-6 (Version None)
Quarter: 2006Q4

REPORT INFORMATION
  Report Type: 
  Country: None (occurrence: None)
  Receive Date: 20061019
  Receipt Date: 20061013
  Transmission Date: 20070319
  Serious: Yes (Other)
  Sender: FDA-Public Use
  Company Number: 2006UW19878

PATIENT
  Age: 78 Year
  Sex: Male
  Weight: 62.6 kg

DRUGS (4)
  1. ZOLADEX [Suspect]
     Indication: PROSTATE CANCER
     Route: 058
     Dates: start: 20061010
  2. LORAZEPAM [Concomitant]
  3. PRILOSEC [Concomitant]
     Route: 048
  4. LOVASTATIN [Concomitant]

REACTIONS (4)
  - ASTHENIA [None]
  - DIZZINESS [None]
  - PENILE HAEMORRHAGE [None]
  - VOMITING [None]
